FAERS Safety Report 8582043-X (Version None)
Quarter: 2012Q3

REPORT INFORMATION
  Report Type: 
  Country: None (occurrence: None)
  Receive Date: 20120809
  Receipt Date: 20120803
  Transmission Date: 20120928
  Serious: Yes (Hospitalization, Other)
  Sender: FDA-Public Use
  Company Number: DE-PFIZER INC-2012177271

PATIENT
  Age: 32 Year
  Sex: Female
  Weight: 150 kg

DRUGS (1)
  1. MEDROXYPROGESTERONE ACETATE [Suspect]
     Indication: CONTRACEPTION
     Dosage: 104 MG / 0,65 ML
     Dates: start: 20120614

REACTIONS (2)
  - ENDOMETRIAL HYPERTROPHY [None]
  - UTERINE HAEMORRHAGE [None]
